FAERS Safety Report 7273936-4 (Version None)
Quarter: 2011Q1

REPORT INFORMATION
  Report Type: 
  Country: None (occurrence: None)
  Receive Date: 20110203
  Receipt Date: 20110128
  Transmission Date: 20110831
  Serious: Yes (Disabling)
  Sender: FDA-Public Use
  Company Number: GB-PFIZER INC-2011021476

PATIENT
  Age: 25 Year
  Sex: Female
  Weight: 65 kg

DRUGS (13)
  1. CALCIPOTRIOL [Concomitant]
     Dosage: UNK
  2. SULFASALAZINE [Suspect]
     Dosage: UNK
     Dates: start: 20110125
  3. CALCEOS [Concomitant]
     Dosage: UNK
     Dates: start: 20101230, end: 20110101
  4. DOVONEX [Concomitant]
     Dosage: UNK
     Dates: start: 20101220, end: 20110101
  5. CALCIPOTRIOL [Concomitant]
     Dosage: UNK
     Dates: start: 20101230, end: 20110101
  6. NAPROXEN [Concomitant]
     Dosage: UNK
     Dates: start: 20101001, end: 20101001
  7. CALCEOS [Concomitant]
     Dosage: UNK
     Dates: start: 20101021, end: 20101201
  8. DIPROSALIC [Concomitant]
     Dosage: UNK
     Dates: start: 20101220, end: 20101201
  9. BETAMETHASONE VALERATE [Concomitant]
     Dosage: UNK
     Dates: start: 20101001, end: 20101001
  10. HYDROCORTISONE [Concomitant]
     Dosage: UNK
     Dates: start: 20101220, end: 20110101
  11. HYDROMOL [Concomitant]
     Dosage: UNK
     Dates: start: 20101230, end: 20110101
  12. NORDETTE-28 [Concomitant]
     Dosage: UNK
     Dates: start: 20100706, end: 20100101
  13. POLYTAR EMOLLIENT [Concomitant]
     Dosage: UNK
     Dates: start: 20101220, end: 20110117

REACTIONS (2)
  - RASH MACULAR [None]
  - THROAT TIGHTNESS [None]
